FAERS Safety Report 21397134 (Version 1)
Quarter: 2022Q3

REPORT INFORMATION
  Report Type: Spontaneous
  Country: US (occurrence: None)
  Receive Date: 20220929
  Receipt Date: 20220929
  Transmission Date: 20221027
  Serious: Yes (Hospitalization)
  Sender: FDA-Public Use
  Company Number: None

PATIENT
  Sex: Female

DRUGS (1)
  1. FEIBA [Suspect]
     Active Substance: ANTI-INHIBITOR COAGULANT COMPLEX
     Indication: Abnormal clotting factor
     Dosage: 3000U ONCE A DAY AS NEEDED IV
     Route: 042
     Dates: start: 20220831

REACTIONS (1)
  - Urinary bladder haemorrhage [None]

NARRATIVE: CASE EVENT DATE: 20220801
